FAERS Safety Report 12529816 (Version 3)
Quarter: 2016Q3

REPORT INFORMATION
  Report Type: Spontaneous
  Country: US (occurrence: US)
  Receive Date: 20160706
  Receipt Date: 20160808
  Transmission Date: 20161109
  Serious: No
  Sender: FDA-Public Use
  Company Number: US-BEH-2016057608

PATIENT
  Age: 63 Year
  Sex: Female
  Weight: 60 kg

DRUGS (27)
  1. HIZENTRA [Suspect]
     Active Substance: HUMAN IMMUNOGLOBULIN G
     Route: 058
  2. LORAZEPAM. [Concomitant]
     Active Substance: LORAZEPAM
  3. POTASSIUM CL ER [Concomitant]
     Active Substance: POTASSIUM CHLORIDE
  4. L-M-X [Concomitant]
  5. LIDOCAINE/PRILOCAINE [Concomitant]
     Active Substance: LIDOCAINE\PRILOCAINE
  6. MAXALT [Concomitant]
     Active Substance: RIZATRIPTAN BENZOATE
  7. VITAMIN D [Concomitant]
     Active Substance: CHOLECALCIFEROL
  8. SPIRIVA [Concomitant]
     Active Substance: TIOTROPIUM BROMIDE MONOHYDRATE
     Dosage: CAP W/DEV
  9. DIPHENHYDRAMINE. [Concomitant]
     Active Substance: DIPHENHYDRAMINE
  10. CIPROFLOXACIN. [Concomitant]
     Active Substance: CIPROFLOXACIN
     Dosage: 200MG/20ML VIAL
  11. HIZENTRA [Suspect]
     Active Substance: HUMAN IMMUNOGLOBULIN G
     Route: 058
  12. PREDNISONE. [Concomitant]
     Active Substance: PREDNISONE
  13. SINGULAIR [Concomitant]
     Active Substance: MONTELUKAST SODIUM
  14. LAMOTRIGINE. [Concomitant]
     Active Substance: LAMOTRIGINE
  15. QVAR [Concomitant]
     Active Substance: BECLOMETHASONE DIPROPIONATE
     Dosage: INHALER
  16. HIZENTRA [Suspect]
     Active Substance: HUMAN IMMUNOGLOBULIN G
     Dates: start: 20110519
  17. PULMICORT FLEXHALER [Concomitant]
     Active Substance: BUDESONIDE
  18. DESMOPRESSIN ACETATE. [Concomitant]
     Active Substance: DESMOPRESSIN ACETATE
  19. VENTOLIN HFA [Concomitant]
     Active Substance: ALBUTEROL SULFATE
     Dosage: INHALER
  20. LEVOTHYROXINE. [Concomitant]
     Active Substance: LEVOTHYROXINE
  21. EPI-PEN AUTOINJECTOR [Concomitant]
  22. CENTRUM SILVER TABLET [Concomitant]
  23. OMEPRAZOLE DR [Concomitant]
     Active Substance: OMEPRAZOLE
  24. HIZENTRA [Suspect]
     Active Substance: HUMAN IMMUNOGLOBULIN G
     Indication: IMMUNODEFICIENCY COMMON VARIABLE
     Route: 058
  25. ALBUTEROL SULFATE. [Concomitant]
     Active Substance: ALBUTEROL SULFATE
  26. SERTRALINE HCL [Concomitant]
     Active Substance: SERTRALINE HYDROCHLORIDE
  27. ENABLEX [Concomitant]
     Active Substance: DARIFENACIN HYDROBROMIDE

REACTIONS (2)
  - Gastroenteritis [Unknown]
  - Gastroenteritis [Unknown]

NARRATIVE: CASE EVENT DATE: 201511
